FAERS Safety Report 6187769-3 (Version None)
Quarter: 2009Q2

REPORT INFORMATION
  Report Type: 
  Country: None (occurrence: None)
  Receive Date: 20090511
  Receipt Date: 20090511
  Transmission Date: 20091009
  Serious: Yes (Other)
  Sender: FDA-Public Use
  Company Number: None

PATIENT
  Sex: Male
  Weight: 92.9874 kg

DRUGS (1)
  1. AVODART [Suspect]
     Indication: PROSTATOMEGALY
     Dosage: 0.5 MG ONCE A DAY ORAL
     Route: 048
     Dates: start: 20080801, end: 20090401

REACTIONS (5)
  - BREAST ENLARGEMENT [None]
  - ERYTHEMA [None]
  - NIPPLE DISORDER [None]
  - NIPPLE PAIN [None]
  - RASH [None]
